FAERS Safety Report 9091414 (Version 1)
Quarter: 2013Q1

REPORT INFORMATION
  Report Type: Report from Study
  Country: US (occurrence: US)
  Receive Date: 20130218
  Receipt Date: 20130218
  Transmission Date: 20140127
  Serious: No
  Sender: FDA-Public Use
  Company Number: US-ABBOTT-12P-163-0906167-00

PATIENT
  Sex: Male

DRUGS (1)
  1. SIMCOR [Suspect]
     Indication: HYPERTENSION
     Dosage: 2000/40 MG
     Dates: start: 201102

REACTIONS (4)
  - Flushing [Unknown]
  - Feeling hot [Unknown]
  - Pruritus [Unknown]
  - Neuropathy peripheral [Unknown]
